FAERS Safety Report 19056627 (Version 1)
Quarter: 2021Q1

REPORT INFORMATION
  Report Type: Report from Study
  Country: NL (occurrence: NL)
  Receive Date: 20210325
  Receipt Date: 20210325
  Transmission Date: 20210420
  Serious: Yes (Other)
  Sender: FDA-Public Use
  Company Number: NL-PFIZER INC-2021291281

PATIENT
  Age: 55 Year
  Sex: Male

DRUGS (1)
  1. CYTARABINE. [Suspect]
     Active Substance: CYTARABINE
     Indication: NON-HODGKIN^S LYMPHOMA
     Dosage: 3 G/M2, TWICE DAILY

REACTIONS (3)
  - Pneumoperitoneum [Unknown]
  - Pneumatosis intestinalis [Unknown]
  - Lung disorder [Unknown]
